FAERS Safety Report 5020532-5 (Version None)
Quarter: 2006Q2

REPORT INFORMATION
  Report Type: 
  Country: None (occurrence: None)
  Receive Date: 20060607
  Receipt Date: 20060607
  Transmission Date: 20061013
  Serious: Yes (Life-Threatening)
  Sender: FDA-Public Use
  Company Number: None

PATIENT
  Sex: Female
  Weight: 71.2147 kg

DRUGS (1)
  1. FERRLECIT [Suspect]
     Indication: IRON DEFICIENCY ANAEMIA
     Dosage: 250MG  X4 DOSES  IV DRIP
     Route: 041
     Dates: start: 20060605, end: 20060605

REACTIONS (6)
  - ANAPHYLACTIC REACTION [None]
  - DYSPNOEA [None]
  - INFUSION RELATED REACTION [None]
  - MUSCLE SPASMS [None]
  - RASH PAPULAR [None]
  - SKIN DISCOLOURATION [None]
